FAERS Safety Report 5600411-2 (Version None)
Quarter: 2008Q1

REPORT INFORMATION
  Report Type: 
  Country: None (occurrence: None)
  Receive Date: 20080123
  Receipt Date: 20071128
  Transmission Date: 20080703
  Serious: Yes (Life-Threatening, Hospitalization)
  Sender: FDA-Public Use
  Company Number: JP-ASTRAZENECA-2007AP05810

PATIENT
  Age: 17941 Day
  Sex: Male
  Weight: 58 kg

DRUGS (32)
  1. FOSCAVIR [Suspect]
     Indication: INFECTION PROPHYLAXIS
     Route: 042
     Dates: start: 20061123, end: 20061208
  2. FOSCAVIR [Suspect]
     Indication: ENCEPHALITIS CYTOMEGALOVIRUS
     Route: 042
     Dates: start: 20061123, end: 20061208
  3. FOSCAVIR [Suspect]
     Indication: HIV INFECTION
     Route: 042
     Dates: start: 20061123, end: 20061208
  4. FOSCAVIR [Suspect]
     Route: 042
     Dates: start: 20061209, end: 20061230
  5. FOSCAVIR [Suspect]
     Route: 042
     Dates: start: 20061209, end: 20061230
  6. FOSCAVIR [Suspect]
     Route: 042
     Dates: start: 20061209, end: 20061230
  7. FOSCAVIR [Suspect]
     Route: 042
     Dates: start: 20070120, end: 20070201
  8. FOSCAVIR [Suspect]
     Route: 042
     Dates: start: 20070120, end: 20070201
  9. FOSCAVIR [Suspect]
     Route: 042
     Dates: start: 20070120, end: 20070201
  10. COMBIVIR [Suspect]
     Indication: HIV INFECTION
     Dosage: 2 TABLETS DAILY
     Route: 048
     Dates: start: 20061114, end: 20061211
  11. KALETRA [Suspect]
     Indication: HIV INFECTION
     Dosage: 4 TABLETS PER DAY
     Route: 048
     Dates: start: 20061114, end: 20070223
  12. REYATAZ [Suspect]
     Route: 048
     Dates: start: 20070224, end: 20070319
  13. EPZICOM [Suspect]
     Indication: HIV INFECTION
     Dosage: 1 TABLET/DAY
     Route: 048
     Dates: start: 20061212, end: 20070319
  14. ZITHROMAX [Suspect]
     Indication: INFECTION PROPHYLAXIS
     Route: 048
     Dates: start: 20061106
  15. ZITHROMAX [Suspect]
     Indication: OPPORTUNISTIC INFECTION PROPHYLAXIS
     Route: 048
     Dates: start: 20061106
  16. VALGANCICLOVIR HCL [Suspect]
     Indication: ENCEPHALITIS CYTOMEGALOVIRUS
     Route: 048
     Dates: start: 20061123, end: 20061208
  17. VALGANCICLOVIR HCL [Suspect]
     Route: 048
     Dates: start: 20061209
  18. BAKTAR [Concomitant]
     Indication: ANTIFUNGAL PROPHYLAXIS
     Route: 048
     Dates: start: 20061106, end: 20061122
  19. DIFLUCAN [Concomitant]
     Indication: OESOPHAGEAL CANDIDIASIS
     Route: 048
     Dates: start: 20061108, end: 20070127
  20. GASTER OD [Concomitant]
     Indication: PROPHYLAXIS AGAINST GASTROINTESTINAL ULCER
     Route: 048
     Dates: start: 20061116, end: 20070306
  21. FUNGIZONE [Concomitant]
     Indication: ORAL CANDIDIASIS
     Route: 048
     Dates: start: 20061103, end: 20070220
  22. I V SOLUTIONS [Concomitant]
     Route: 042
     Dates: start: 20061025, end: 20070220
  23. NEUTROGIN [Concomitant]
     Indication: LEUKOPENIA
     Dates: start: 20061204, end: 20061206
  24. NEUTROGIN [Concomitant]
     Dates: start: 20061209, end: 20061210
  25. NEUTROGIN [Concomitant]
     Dates: start: 20061225, end: 20061226
  26. NEUTROGIN [Concomitant]
     Dates: start: 20070112, end: 20070114
  27. NEUTROGIN [Concomitant]
     Dates: start: 20070119, end: 20070121
  28. NEUTROGIN [Concomitant]
     Dates: start: 20070126, end: 20070128
  29. NEUTROGIN [Concomitant]
     Dates: start: 20070203, end: 20070205
  30. NEUTROGIN [Concomitant]
     Dates: start: 20070217, end: 20070220
  31. MUCOSTA [Concomitant]
     Indication: PROPHYLAXIS AGAINST GASTROINTESTINAL ULCER
     Route: 048
     Dates: start: 20070116, end: 20070228
  32. UNKNOWN DRUG [Concomitant]
     Indication: PNEUMOCYSTIS JIROVECI PNEUMONIA
     Dates: start: 20061122

REACTIONS (14)
  - ACUTE RESPIRATORY FAILURE [None]
  - BONE MARROW FAILURE [None]
  - C-REACTIVE PROTEIN INCREASED [None]
  - CEREBRAL TOXOPLASMOSIS [None]
  - DISSEMINATED INTRAVASCULAR COAGULATION [None]
  - EATING DISORDER [None]
  - ENCEPHALITIS [None]
  - HYPOALBUMINAEMIA [None]
  - LOSS OF CONSCIOUSNESS [None]
  - PANCYTOPENIA [None]
  - PNEUMOTHORAX [None]
  - RESPIRATORY ARREST [None]
  - SEPSIS [None]
  - SHOCK [None]
